FAERS Safety Report 9887983 (Version 3)
Quarter: 2014Q1

REPORT INFORMATION
  Report Type: Report from Study
  Country: BE (occurrence: BE)
  Receive Date: 20140211
  Receipt Date: 20140214
  Transmission Date: 20141002
  Serious: Yes (Other)
  Sender: FDA-Public Use
  Company Number: BE-BAYER-2014-003270

PATIENT
  Age: 61 Year
  Sex: Male

DRUGS (4)
  1. NEXAVAR [Suspect]
     Indication: HEPATOCELLULAR CARCINOMA
     Dosage: DAILY DOSE 400 MG
     Dates: start: 20130529
  2. NEXAVAR [Suspect]
     Indication: HEPATOCELLULAR CARCINOMA
     Dosage: DAILY DOSE 200 MG
     Dates: end: 20140204
  3. ENTEROL [SACCHAROMYCES BOULARDII] [Concomitant]
     Dosage: UNK TID
  4. EMCONCOR [Concomitant]
     Dosage: 5 MG, QD

REACTIONS (3)
  - Diarrhoea [None]
  - Metastases to bone [None]
  - Hepatocellular carcinoma [None]
